FAERS Safety Report 14903968 (Version 1)
Quarter: 2018Q2

REPORT INFORMATION
  Report Type: Spontaneous
  Country: US (occurrence: US)
  Receive Date: 20180516
  Receipt Date: 20180516
  Transmission Date: 20180711
  Serious: No
  Sender: FDA-Public Use
  Company Number: US-COLLEGIUM PHARMACEUTICAL, INC.-2018CGM00095

PATIENT
  Sex: Female

DRUGS (4)
  1. OXYCODONE IMMEDIATE RELEASE [Suspect]
     Active Substance: OXYCODONE
     Dosage: 20 MG, UNK
  2. XTAMPZA ER [Suspect]
     Active Substance: OXYCODONE
     Indication: PAIN
     Dosage: 36 MG, UNK
     Dates: start: 201802
  3. OXYCODONE IMMEDIATE RELEASE [Suspect]
     Active Substance: OXYCODONE
     Indication: PAIN
     Dosage: 10 MG, UP TO 6X/DAY (EVERY 4 TO 6 HOURS)
  4. OXYCODONE IMMEDIATE RELEASE [Suspect]
     Active Substance: OXYCODONE
     Dosage: 15 MG, UNK

REACTIONS (1)
  - Drug ineffective [Not Recovered/Not Resolved]

NARRATIVE: CASE EVENT DATE: 201802
